FAERS Safety Report 4402773-0 (Version None)
Quarter: 2004Q3

REPORT INFORMATION
  Report Type: 
  Country: None (occurrence: None)
  Receive Date: 20040719
  Receipt Date: 20040420
  Transmission Date: 20050211
  Serious: Yes (Hospitalization)
  Sender: FDA-Public Use
  Company Number: DRON00204001114

PATIENT
  Age: 64 Year
  Sex: Male
  Weight: 75 kg

DRUGS (12)
  1. MARINOL [Suspect]
     Indication: POST PROCEDURAL NAUSEA
     Dosage: 2 DF DAILY PO
     Route: 048
     Dates: start: 20040329, end: 20040402
  2. MARINOL [Suspect]
     Indication: POST PROCEDURAL VOMITING
     Dosage: 2 DF DAILY PO
     Route: 048
     Dates: start: 20040329, end: 20040402
  3. ONDANSETRON HCL [Suspect]
     Indication: POST PROCEDURAL NAUSEA
     Dosage: 16 MG ONCE IV
     Route: 042
     Dates: start: 20040329, end: 20040329
  4. ONDANSETRON HCL [Suspect]
     Indication: POST PROCEDURAL VOMITING
     Dosage: 16 MG ONCE IV
     Route: 042
     Dates: start: 20040329, end: 20040329
  5. DEXAMETHASONE [Suspect]
     Indication: POST PROCEDURAL NAUSEA
     Dosage: 20 MG ONCE PO
     Route: 048
     Dates: start: 20040329, end: 20040329
  6. DEXAMETHASONE [Suspect]
     Indication: POST PROCEDURAL VOMITING
     Dosage: 20 MG ONCE PO
     Route: 048
     Dates: start: 20040329, end: 20040329
  7. CARBOPLATIN [Suspect]
     Indication: CHEMOTHERAPY
     Dosage: 465 MG ONCE IV
     Route: 042
     Dates: start: 20040329, end: 20040329
  8. GEMZAR [Suspect]
     Indication: CHEMOTHERAPY
     Dosage: 1830 MG ONCE IV, 1830 MG ONCE IV
     Route: 042
     Dates: start: 20040329, end: 20040329
  9. GEMZAR [Suspect]
     Indication: CHEMOTHERAPY
     Dosage: 1830 MG ONCE IV, 1830 MG ONCE IV
     Route: 042
     Dates: start: 20040405, end: 20040405
  10. VERAPAMIL [Concomitant]
  11. GLUCOTROL [Concomitant]
  12. LISINOPRIL [Concomitant]

REACTIONS (7)
  - BLOOD CREATININE INCREASED [None]
  - CHEST PAIN [None]
  - FEBRILE NEUTROPENIA [None]
  - GASTROOESOPHAGEAL REFLUX DISEASE [None]
  - MUSCLE SPASMS [None]
  - PANCYTOPENIA [None]
  - WHITE BLOOD CELL COUNT INCREASED [None]
